FAERS Safety Report 10241729 (Version 1)
Quarter: 2014Q2

REPORT INFORMATION
  Report Type: Report from Study
  Country: AR (occurrence: AR)
  Receive Date: 20140617
  Receipt Date: 20140617
  Transmission Date: 20141212
  Serious: Yes (Other)
  Sender: FDA-Public Use
  Company Number: PHHY2014AR074399

PATIENT
  Age: 87 Year
  Sex: Female

DRUGS (1)
  1. DIOVAN [Suspect]
     Indication: HYPERTENSION
     Dosage: 1 TABLET (80 MG), DAILY
     Route: 048

REACTIONS (5)
  - Fall [Unknown]
  - Syncope [Unknown]
  - Hearing impaired [Unknown]
  - Memory impairment [Unknown]
  - Fatigue [Unknown]
